FAERS Safety Report 6656022-3 (Version None)
Quarter: 2010Q1

REPORT INFORMATION
  Report Type: 
  Country: None (occurrence: None)
  Receive Date: 20100329
  Receipt Date: 20100325
  Transmission Date: 20100710
  Serious: No
  Sender: FDA-Public Use
  Company Number: US-B.I. PHARMACEUTICALS,INC./RIDGEFIELD-2010-BP-02344BP

PATIENT
  Age: 53 Year
  Sex: Male

DRUGS (3)
  1. FLOMAX [Suspect]
     Indication: NEPHROLITHIASIS
     Dosage: 1.6 MG
     Route: 048
     Dates: start: 20100218
  2. LISINOPRIL [Concomitant]
     Dosage: 10 MG
  3. HYDROCODONE/ACETA [Concomitant]

REACTIONS (5)
  - DIZZINESS [None]
  - ERECTION INCREASED [None]
  - HEADACHE [None]
  - INSOMNIA [None]
  - OVERDOSE [None]
